FAERS Safety Report 6669547-1 (Version None)
Quarter: 2010Q2

REPORT INFORMATION
  Report Type: 
  Country: None (occurrence: None)
  Receive Date: 20100406
  Receipt Date: 20100203
  Transmission Date: 20101027
  Serious: Yes (Other)
  Sender: FDA-Public Use
  Company Number: DE-BAYER-201020728GPV

PATIENT
  Sex: Female

DRUGS (1)
  1. BETAFERON [Suspect]
     Indication: DRUG USE FOR UNKNOWN INDICATION
     Dosage: 3 INJECTIONS

REACTIONS (3)
  - ARRHYTHMIA [None]
  - BODY TEMPERATURE INCREASED [None]
  - MALAISE [None]
